FAERS Safety Report 19800826 (Version 4)
Quarter: 2021Q4

REPORT INFORMATION
  Report Type: Spontaneous
  Country: US (occurrence: US)
  Receive Date: 20210907
  Receipt Date: 20211109
  Transmission Date: 20220303
  Serious: Yes (Hospitalization, Other)
  Sender: FDA-Public Use
  Company Number: US-BIOGEN-2021BI01044371

PATIENT
  Sex: Female

DRUGS (1)
  1. PLEGRIDY [Suspect]
     Active Substance: PEGINTERFERON BETA-1A
     Indication: Multiple sclerosis
     Route: 058
     Dates: start: 20180516, end: 20200819

REACTIONS (10)
  - Malaise [Unknown]
  - Quadriplegia [Unknown]
  - Concussion [Unknown]
  - Muscle spasms [Unknown]
  - Mobility decreased [Unknown]
  - Fall [Recovered/Resolved]
  - Head injury [Unknown]
  - Multiple sclerosis relapse [Unknown]
  - Musculoskeletal disorder [Unknown]
  - Pain [Unknown]
